FAERS Safety Report 6415748-7 (Version None)
Quarter: 2009Q4

REPORT INFORMATION
  Report Type: 
  Country: None (occurrence: None)
  Receive Date: 20091022
  Receipt Date: 20091020
  Transmission Date: 20100525
  Serious: Yes (Hospitalization)
  Sender: FDA-Public Use
  Company Number: 2009OT0231

PATIENT
  Age: 5 Year
  Sex: Female

DRUGS (3)
  1. ORAPRED ODT [Suspect]
     Indication: ASTHMA
     Dosage: 2 TABLETS, ONCE DAILY
     Dates: start: 20091001, end: 20091001
  2. PULMICORT [Concomitant]
  3. ALBUTEROL [Concomitant]

REACTIONS (3)
  - ASTHMA [None]
  - CONDITION AGGRAVATED [None]
  - DRUG HYPERSENSITIVITY [None]
